FAERS Safety Report 16463577 (Version 1)
Quarter: 2019Q2

REPORT INFORMATION
  Report Type: Report from Study
  Country: ES (occurrence: ES)
  Receive Date: 20190621
  Receipt Date: 20190621
  Transmission Date: 20190711
  Serious: Yes (Hospitalization)
  Sender: FDA-Public Use
  Company Number: ES-PFIZER INC-2019261627

PATIENT
  Age: 69 Year
  Sex: Female

DRUGS (4)
  1. BUPRENORPHINE. [Suspect]
     Active Substance: BUPRENORPHINE
     Indication: INJURY
     Dosage: UNK
     Dates: start: 20170222, end: 20170306
  2. TAPENTADOL [Suspect]
     Active Substance: TAPENTADOL
     Dosage: 100 MG, 2X/DAY (EVERY 12 HOURS)
     Dates: start: 20170222, end: 20170306
  3. PREGABALIN. [Suspect]
     Active Substance: PREGABALIN
     Dosage: 75 MG, 2X/DAY (EVERY 12 HOURS)
     Dates: start: 20170222, end: 20170306
  4. DIAZEPAM. [Suspect]
     Active Substance: DIAZEPAM
     Dosage: 5 MG, 1/2-1/2-1
     Dates: start: 20170222, end: 20170306

REACTIONS (2)
  - Bradyphrenia [Recovered/Resolved]
  - Disorientation [Recovered/Resolved]

NARRATIVE: CASE EVENT DATE: 20170302
